FAERS Safety Report 7171587-3 (Version None)
Quarter: 2010Q4

REPORT INFORMATION
  Report Type: 
  Country: None (occurrence: None)
  Receive Date: 20101217
  Receipt Date: 20101210
  Transmission Date: 20110411
  Serious: No
  Sender: FDA-Public Use
  Company Number: US-BIOGENIDEC-2010BI043690

PATIENT
  Age: 50 Year
  Sex: Female

DRUGS (2)
  1. AVONEX [Suspect]
     Indication: MULTIPLE SCLEROSIS
     Route: 030
     Dates: start: 20080620
  2. AVONEX [Suspect]
     Route: 030
     Dates: start: 20000614, end: 20080215

REACTIONS (2)
  - CONSTIPATION [None]
  - OEDEMA PERIPHERAL [None]
